FAERS Safety Report 10308624 (Version 1)
Quarter: 2014Q3

REPORT INFORMATION
  Report Type: Report from Study
  Country: AU (occurrence: AU)
  Receive Date: 20140716
  Receipt Date: 20140716
  Transmission Date: 20150326
  Serious: Yes (Death)
  Sender: FDA-Public Use
  Company Number: AU-GLAXOSMITHKLINE-Z0022971A

PATIENT
  Age: 53 Year
  Sex: Male

DRUGS (1)
  1. ZANAMIVIR [Suspect]
     Active Substance: ZANAMIVIR
     Indication: INFLUENZA
     Dosage: 300MG TWICE PER DAY
     Route: 042
     Dates: start: 20140630, end: 20140705

REACTIONS (3)
  - Influenza [Fatal]
  - Bronchopulmonary aspergillosis [Fatal]
  - Acute respiratory distress syndrome [Fatal]

NARRATIVE: CASE EVENT DATE: 20140629
